FAERS Safety Report 13160871 (Version 2)
Quarter: 2017Q1

REPORT INFORMATION
  Report Type: Spontaneous
  Country: US (occurrence: US)
  Receive Date: 20170130
  Receipt Date: 20170209
  Transmission Date: 20170428
  Serious: Yes (Other)
  Sender: FDA-Public Use
  Company Number: US-TAIHO ONCOLOGY INC-EU-2017-00082

PATIENT
  Age: 59 Year
  Sex: Female
  Weight: 89.53 kg

DRUGS (22)
  1. POTASSIUM CHLORIDE. [Concomitant]
     Active Substance: POTASSIUM CHLORIDE
  2. GLIPIZIDE. [Concomitant]
     Active Substance: GLIPIZIDE
  3. HYDROCHLOROTHIAZIDE/LISINOPRIL [Concomitant]
     Dosage: 20 MG-25 MG
  4. AMLODIPINE [Concomitant]
     Active Substance: AMLODIPINE BESYLATE
  5. FONDAPARINUX [Concomitant]
     Active Substance: FONDAPARINUX
     Dosage: 10 MG/0.8 ML
     Route: 058
  6. LABETALOL [Concomitant]
     Active Substance: LABETALOL\LABETALOL HYDROCHLORIDE
  7. LONSURF [Suspect]
     Active Substance: TIPIRACIL HYDROCHLORIDE\TRIFLURIDINE
     Indication: COLON CANCER
     Route: 048
     Dates: start: 20161121, end: 2016
  8. CITALOPRAM [Concomitant]
     Active Substance: CITALOPRAM HYDROBROMIDE
     Dosage: NI
  9. OMEPRAZOLE. [Concomitant]
     Active Substance: OMEPRAZOLE
  10. ZOVIRAX [Concomitant]
     Active Substance: ACYCLOVIR
     Route: 061
  11. NEUPOGEN [Concomitant]
     Active Substance: FILGRASTIM
     Dosage: 480 MCG/0.8 ML
  12. PRADAXA [Concomitant]
     Active Substance: DABIGATRAN ETEXILATE MESYLATE
  13. VICODIN [Concomitant]
     Active Substance: ACETAMINOPHEN\HYDROCODONE BITARTRATE
     Dosage: 5MG-300MG
  14. OXYCODONE [Concomitant]
     Active Substance: OXYCODONE
     Indication: PAIN
  15. OXYCODONE [Concomitant]
     Active Substance: OXYCODONE
  16. LORATADINE. [Concomitant]
     Active Substance: LORATADINE
  17. ONDANSETRON [Concomitant]
     Active Substance: ONDANSETRON
  18. PROCHLORPERAZINE MALEATE. [Concomitant]
     Active Substance: PROCHLORPERAZINE MALEATE
  19. ARIMIDEX [Concomitant]
     Active Substance: ANASTROZOLE
  20. OXYCONTIN [Concomitant]
     Active Substance: OXYCODONE HYDROCHLORIDE
     Dosage: NI
  21. METFORMIN [Concomitant]
     Active Substance: METFORMIN HYDROCHLORIDE
     Dosage: NI
  22. GABAPENTIN. [Concomitant]
     Active Substance: GABAPENTIN

REACTIONS (10)
  - Pruritus [Unknown]
  - Leukopenia [Unknown]
  - Diarrhoea [Unknown]
  - Acute kidney injury [Recovering/Resolving]
  - Chest pain [Unknown]
  - Gastrointestinal haemorrhage [Unknown]
  - Dyspnoea exertional [Unknown]
  - Bone pain [Unknown]
  - Dysgeusia [Unknown]
  - Anaemia [Unknown]

NARRATIVE: CASE EVENT DATE: 2016
